FAERS Safety Report 5152160-5 (Version None)
Quarter: 2006Q4

REPORT INFORMATION
  Report Type: 
  Country: None (occurrence: None)
  Receive Date: 20061116
  Receipt Date: 20061115
  Transmission Date: 20070319
  Serious: Yes (Hospitalization)
  Sender: FDA-Public Use
  Company Number: US-GLAXOSMITHKLINE-A0627684A

PATIENT
  Sex: Male

DRUGS (2)
  1. ARIXTRA [Suspect]
     Indication: DRUG USE FOR UNKNOWN INDICATION
     Route: 065
  2. NO CONCURRENT MEDICATION [Concomitant]

REACTIONS (8)
  - ASTHENIA [None]
  - BLOOD PRESSURE DECREASED [None]
  - CONTUSION [None]
  - HAEMORRHAGE [None]
  - ILL-DEFINED DISORDER [None]
  - RED BLOOD CELL COUNT DECREASED [None]
  - STOMACH DISCOMFORT [None]
  - WHITE BLOOD CELL COUNT INCREASED [None]
